FAERS Safety Report 6300492-7 (Version None)
Quarter: 2009Q3

REPORT INFORMATION
  Report Type: 
  Country: None (occurrence: None)
  Receive Date: 20090803
  Receipt Date: 20090722
  Transmission Date: 20100115
  Serious: Yes (Hospitalization)
  Sender: FDA-Public Use
  Company Number: GXKR2009BE08359

PATIENT
  Age: 54 Year
  Sex: Female

DRUGS (4)
  1. DICLOFENAC (NGX) (DICLOFENAC) UNKNOWN [Suspect]
     Indication: PAIN IN EXTREMITY
  2. TENOFOVIR DISOPROXIL FUMARATE [Suspect]
     Indication: ANTIRETROVIRAL THERAPY
     Dosage: 300 MG
     Dates: start: 20040101
  3. LOPINAVIR W/RITONAVIR (LOPINAVIR, RITONAVIR) [Concomitant]
  4. LAMIVUDINE [Concomitant]

REACTIONS (13)
  - DRUG INTERACTION [None]
  - DRUG TOXICITY [None]
  - FANCONI SYNDROME ACQUIRED [None]
  - HYPERKALAEMIA [None]
  - HYPOPHOSPHATAEMIA [None]
  - METABOLIC ACIDOSIS [None]
  - PAIN IN EXTREMITY [None]
  - RENAL FAILURE ACUTE [None]
  - RENAL HAEMORRHAGE [None]
  - RENAL INJURY [None]
  - RENAL TUBULAR DISORDER [None]
  - RENAL TUBULAR NECROSIS [None]
  - URINE OSMOLARITY DECREASED [None]
